FAERS Safety Report 6097386-1 (Version None)
Quarter: 2009Q1

REPORT INFORMATION
  Report Type: 
  Country: None (occurrence: None)
  Receive Date: 20090227
  Receipt Date: 20080225
  Transmission Date: 20090719
  Serious: No
  Sender: FDA-Public Use
  Company Number: A0709106A

PATIENT
  Age: 53 Year
  Sex: Female

DRUGS (13)
  1. IMITREX [Suspect]
     Indication: MIGRAINE
     Dosage: 6MG AS REQUIRED
     Route: 058
     Dates: start: 20040101
  2. IMITREX [Suspect]
     Route: 048
     Dates: end: 20040101
  3. ARTOTEC [Concomitant]
  4. PRILOSEC [Concomitant]
  5. NORTRIPTYLINE HCL [Concomitant]
  6. VERAPAMIL [Concomitant]
  7. ASACOL [Concomitant]
  8. INDERAL [Concomitant]
  9. FUROSEMIDE [Concomitant]
  10. SANCTURA [Concomitant]
  11. METOPROLOL [Concomitant]
  12. CENESTIN [Concomitant]
  13. PEPTO BISMOL [Concomitant]

REACTIONS (2)
  - DISCOMFORT [None]
  - NAUSEA [None]
